FAERS Safety Report 5463218-5 (Version None)
Quarter: 2007Q3

REPORT INFORMATION
  Report Type: 
  Country: None (occurrence: None)
  Receive Date: 20070920
  Receipt Date: 20070917
  Transmission Date: 20080115
  Serious: Yes (Hospitalization)
  Sender: FDA-Public Use
  Company Number: B0486450A

PATIENT
  Age: 49 Year
  Sex: Female
  Weight: 83 kg

DRUGS (6)
  1. LAPATINIB [Suspect]
     Dosage: 1250MG PER DAY
     Route: 048
     Dates: start: 20070726
  2. CAPECITABINE [Suspect]
     Dosage: 3500MG PER DAY
     Route: 048
     Dates: start: 20070726, end: 20070829
  3. DEXACORT [Concomitant]
     Dosage: 12MG TWICE PER DAY
     Route: 048
     Dates: start: 20070822, end: 20070905
  4. VALPROATE SODIUM [Concomitant]
     Dosage: 400MG TWICE PER DAY
     Route: 048
     Dates: start: 20070822, end: 20070905
  5. LOSEC [Concomitant]
     Dosage: 20MG PER DAY
     Route: 048
     Dates: start: 20070822, end: 20070905
  6. EPANUTIN [Concomitant]
     Dosage: 300MG PER DAY
     Route: 048
     Dates: end: 20070905

REACTIONS (4)
  - ASTHENIA [None]
  - EATING DISORDER [None]
  - MONOPLEGIA [None]
  - STOMATITIS [None]
